FAERS Safety Report 24186998 (Version 4)
Quarter: 2024Q4

REPORT INFORMATION
  Report Type: Report from Study
  Country: IL (occurrence: IL)
  Receive Date: 20240808
  Receipt Date: 20241001
  Transmission Date: 20250114
  Serious: Yes (Hospitalization)
  Sender: ABBVIE
  Company Number: IL-ABBVIE-5840456

PATIENT
  Sex: Female

DRUGS (3)
  1. SKYRIZI [Suspect]
     Active Substance: RISANKIZUMAB-RZAA
     Indication: Crohn^s disease
     Dosage: FORM STRENGTH: 360 MILLIGRAM
     Route: 058
     Dates: start: 20240710
  2. SKYRIZI [Suspect]
     Active Substance: RISANKIZUMAB-RZAA
     Indication: Crohn^s disease
     Dosage: FORM STRENGTH: 600 MG
     Route: 042
     Dates: start: 20240401, end: 20240613
  3. SULFASALAZINE [Suspect]
     Active Substance: SULFASALAZINE
     Indication: Bone pain
     Route: 065

REACTIONS (14)
  - Meningitis [Recovered/Resolved]
  - Arthralgia [Recovering/Resolving]
  - Rash maculo-papular [Not Recovered/Not Resolved]
  - Rash pruritic [Unknown]
  - Purulent discharge [Not Recovered/Not Resolved]
  - Bone pain [Not Recovered/Not Resolved]
  - Crohn^s disease [Unknown]
  - Stenosis [Unknown]
  - Inflammatory bowel disease [Unknown]
  - Skin ulcer [Not Recovered/Not Resolved]
  - Arthritis [Unknown]
  - Eye inflammation [Unknown]
  - Asthenia [Unknown]
  - Fatigue [Unknown]

NARRATIVE: CASE EVENT DATE: 20240101
